FAERS Safety Report 25862644 (Version 1)
Quarter: 2025Q3

REPORT INFORMATION
  Report Type: Spontaneous
  Country: CA (occurrence: CA)
  Receive Date: 20250930
  Receipt Date: 20250930
  Transmission Date: 20251021
  Serious: Yes (Other)
  Sender: AUROBINDO
  Company Number: CA-AUROBINDO-AUR-APL-2025-048693

PATIENT
  Age: 51 Year
  Sex: Male
  Weight: 102 kg

DRUGS (2)
  1. TAMSULOSIN HYDROCHLORIDE [Suspect]
     Active Substance: TAMSULOSIN HYDROCHLORIDE
     Indication: Urinary incontinence
     Dosage: 0.4 MILLIGRAM, ONCE A DAY
     Route: 048
  2. DUTASTERIDE [Suspect]
     Active Substance: DUTASTERIDE
     Indication: Urinary incontinence
     Dosage: 0.5 MILLIGRAM, ONCE A DAY
     Route: 048

REACTIONS (5)
  - Eye pain [Recovered/Resolved]
  - Headache [Recovered/Resolved]
  - Proctalgia [Recovered/Resolved]
  - Testicular pain [Recovered/Resolved]
  - Urine abnormality [Recovered/Resolved]
